FAERS Safety Report 16963922 (Version 3)
Quarter: 2019Q4

REPORT INFORMATION
  Report Type: Spontaneous
  Country: IR (occurrence: IR)
  Receive Date: 20191026
  Receipt Date: 20191122
  Transmission Date: 20200122
  Serious: Yes (Other)
  Sender: FDA-Public Use
  Company Number: NVSC2019IR015714

PATIENT
  Age: 22 Year
  Sex: Female

DRUGS (2)
  1. DEFERASIROX. [Suspect]
     Active Substance: DEFERASIROX
     Indication: THALASSAEMIA
     Dosage: 40 MG/KG, QD
     Route: 065
  2. DEFERASIROX. [Suspect]
     Active Substance: DEFERASIROX
     Dosage: UNK, BID
     Route: 065

REACTIONS (4)
  - Thrombocytopenia [Recovered/Resolved]
  - Lymphopenia [Unknown]
  - Leukopenia [Recovered/Resolved]
  - Neutropenia [Unknown]
